FAERS Safety Report 24134056 (Version 3)
Quarter: 2024Q3

REPORT INFORMATION
  Report Type: Spontaneous
  Country: JP (occurrence: JP)
  Receive Date: 20240724
  Receipt Date: 20240829
  Transmission Date: 20241017
  Serious: Yes (Hospitalization, Other)
  Sender: NEUROCRINE BIOSCIENCES
  Company Number: JP-NEUROCRINE BIOSCIENCES INC.-2024NBI07204

PATIENT
  Age: 77 Year
  Sex: Female

DRUGS (4)
  1. VALBENAZINE [Suspect]
     Active Substance: VALBENAZINE
     Indication: Tardive dyskinesia
     Dosage: 40 MILLIGRAM
     Route: 048
     Dates: start: 20240628, end: 20240711
  2. BROTIZOLAM [Suspect]
     Active Substance: BROTIZOLAM
     Indication: Product used for unknown indication
     Dosage: 0.25 MILLIGRAM
     Route: 048
  3. BLONANSERIN [Concomitant]
     Active Substance: BLONANSERIN
     Dosage: UNK
  4. FLUNITRAZEPAM [Concomitant]
     Active Substance: FLUNITRAZEPAM
     Dosage: UNK

REACTIONS (5)
  - Muscular weakness [Unknown]
  - Mobility decreased [Unknown]
  - Contusion [Unknown]
  - Fall [Unknown]
  - Rhabdomyolysis [Recovered/Resolved]
